FAERS Safety Report 7601445-9 (Version None)
Quarter: 2011Q3

REPORT INFORMATION
  Report Type: 
  Country: None (occurrence: None)
  Receive Date: 20110711
  Receipt Date: 20110629
  Transmission Date: 20111222
  Serious: Yes (Hospitalization)
  Sender: FDA-Public Use
  Company Number: JP-ELI_LILLY_AND_COMPANY-JP201106000453

PATIENT
  Sex: Female

DRUGS (1)
  1. CIALIS [Suspect]
     Dosage: UNK
     Route: 048
     Dates: start: 20110529, end: 20110529

REACTIONS (5)
  - DYSARTHRIA [None]
  - GAIT DISTURBANCE [None]
  - ACCIDENTAL DRUG INTAKE BY CHILD [None]
  - EYE MOVEMENT DISORDER [None]
  - DIZZINESS [None]
